FAERS Safety Report 4355565-5 (Version None)
Quarter: 2004Q2

REPORT INFORMATION
  Report Type: 
  Country: None (occurrence: None)
  Receive Date: 20040430
  Receipt Date: 20031216
  Transmission Date: 20050107
  Serious: Yes (Hospitalization)
  Sender: FDA-Public Use
  Company Number: KDL046736

PATIENT
  Age: 51 Year
  Sex: Female
  Weight: 98.1 kg

DRUGS (7)
  1. EPOGEN [Suspect]
     Indication: ANAEMIA OF MALIGNANT DISEASE
     Dosage: 80000 U, WEEKLY, SC
     Route: 058
     Dates: start: 20021218
  2. DOCETAXEL [Concomitant]
  3. CARBOPLATIN [Concomitant]
  4. DEXAMETHASONE [Concomitant]
  5. METOCLOPRAMIDE [Concomitant]
  6. CONJUGATED ESTROGEN [Concomitant]
  7. PACLITAXEL [Concomitant]

REACTIONS (4)
  - DEEP VEIN THROMBOSIS [None]
  - NEUROPATHY PERIPHERAL [None]
  - PULMONARY EMBOLISM [None]
  - RESPIRATORY TRACT INFECTION [None]
